FAERS Safety Report 8954723 (Version 1)
Quarter: 2012Q4

REPORT INFORMATION
  Report Type: 
  Country: GB (occurrence: GB)
  Receive Date: 20121207
  Receipt Date: 20121207
  Transmission Date: 20130627
  Serious: Yes (Other)
  Sender: FDA-Public Use
  Company Number: GB-MYLANLABS-2012S1024455

PATIENT
  Sex: Male

DRUGS (2)
  1. DILTIAZEM [Suspect]
     Indication: CORONARY ARTERY BYPASS
  2. SIMVASTATIN [Suspect]
     Indication: CORONARY ARTERY BYPASS

REACTIONS (3)
  - Bladder dysfunction [Unknown]
  - Medication error [Unknown]
  - Oedema peripheral [Unknown]
